FAERS Safety Report 6781654-1 (Version None)
Quarter: 2010Q2

REPORT INFORMATION
  Report Type: 
  Country: None (occurrence: None)
  Receive Date: 20100617
  Receipt Date: 20100617
  Transmission Date: 20101027
  Serious: Yes (Other)
  Sender: FDA-Public Use
  Company Number: None

PATIENT
  Age: 40 Year
  Sex: Female
  Weight: 68.4932 kg

DRUGS (4)
  1. HYDROCHLOROTHIAZIDE [Suspect]
     Indication: ANXIETY
     Dosage: 25 MG 1 X DAILY MORNING PO
     Route: 048
     Dates: start: 20100429, end: 20100503
  2. HYDROCHLOROTHIAZIDE [Suspect]
     Indication: HYPERTENSION
     Dosage: 25 MG 1 X DAILY MORNING PO
     Route: 048
     Dates: start: 20100429, end: 20100503
  3. SERTRALINE HYDROCHLORIDE [Suspect]
     Indication: DEPRESSION
     Dosage: 100 MG 1 DAIL NIGHT PO
     Route: 048
     Dates: start: 20031215, end: 20100611
  4. CLONAZEPAM [Concomitant]

REACTIONS (8)
  - ANXIETY [None]
  - CRYING [None]
  - DECREASED APPETITE [None]
  - FLUSHING [None]
  - PANIC REACTION [None]
  - RESTLESSNESS [None]
  - TREMOR [None]
  - WEIGHT DECREASED [None]
